FAERS Safety Report 23002569 (Version 5)
Quarter: 2025Q1

REPORT INFORMATION
  Report Type: Spontaneous
  Country: US (occurrence: US)
  Receive Date: 20230928
  Receipt Date: 20250225
  Transmission Date: 20250409
  Serious: No
  Sender: PFIZER
  Company Number: US-PFIZER INC-202300311159

PATIENT
  Age: 47 Year
  Sex: Female

DRUGS (4)
  1. XELJANZ XR [Suspect]
     Active Substance: TOFACITINIB CITRATE
     Dates: start: 202308
  2. XELJANZ XR [Suspect]
     Active Substance: TOFACITINIB CITRATE
     Dates: start: 202408
  3. TORSEMIDE [Concomitant]
     Active Substance: TORSEMIDE
  4. CELEBREX [Concomitant]
     Active Substance: CELECOXIB

REACTIONS (6)
  - Back pain [Unknown]
  - Movement disorder [Unknown]
  - Bronchitis [Not Recovered/Not Resolved]
  - Arthralgia [Not Recovered/Not Resolved]
  - Product communication issue [Unknown]
  - Product dose omission issue [Unknown]
